FAERS Safety Report 18916620 (Version 1)
Quarter: 2021Q1

REPORT INFORMATION
  Report Type: Spontaneous
  Country: US (occurrence: US)
  Receive Date: 20210219
  Receipt Date: 20210219
  Transmission Date: 20210420
  Serious: No
  Sender: FDA-Public Use
  Company Number: US-GLAXOSMITHKLINE-USCH2021GSK006828

PATIENT
  Sex: Female
  Weight: 62 kg

DRUGS (2)
  1. IBUPROFEN. [Suspect]
     Active Substance: IBUPROFEN
     Indication: PYREXIA
     Dosage: UNK
  2. ASPIRIN. [Suspect]
     Active Substance: ASPIRIN
     Indication: PYREXIA
     Dosage: UNK

REACTIONS (4)
  - Oral discomfort [Unknown]
  - Peripheral swelling [Unknown]
  - Lip swelling [Unknown]
  - Drug hypersensitivity [Unknown]
